FAERS Safety Report 20778468 (Version 2)
Quarter: 2023Q2

REPORT INFORMATION
  Report Type: Spontaneous
  Country: US (occurrence: US)
  Receive Date: 20220503
  Receipt Date: 20230502
  Transmission Date: 20230722
  Serious: No
  Sender: FDA-Public Use
  Company Number: US-AMNEAL PHARMACEUTICALS-2022-AMRX-00044

PATIENT
  Age: 1 Year
  Sex: Male
  Weight: 15.01 kg

DRUGS (5)
  1. VIGABATRIN [Suspect]
     Active Substance: VIGABATRIN
     Indication: Tuberous sclerosis complex
     Dosage: 500 MILLIGRAM, 2X/DAY
     Route: 048
     Dates: start: 2021
  2. VIGABATRIN [Suspect]
     Active Substance: VIGABATRIN
     Dosage: 500 MG IN AM 1000MG IN EVENING, QD
     Route: 048
  3. ACTHAR [Concomitant]
     Active Substance: CORTICOTROPIN
  4. HP [HEPARINOID] [Concomitant]
  5. VIGABATRIN [Concomitant]
     Active Substance: VIGABATRIN

REACTIONS (11)
  - Head injury [Unknown]
  - Fall [Unknown]
  - Eye discharge [Not Recovered/Not Resolved]
  - Ear infection [Unknown]
  - Nasal congestion [Unknown]
  - Nasopharyngitis [Not Recovered/Not Resolved]
  - Product dose omission issue [Unknown]
  - Product use in unapproved indication [Unknown]
  - Cough [Not Recovered/Not Resolved]
  - Conjunctivitis [Not Recovered/Not Resolved]
  - Epilepsy [Unknown]

NARRATIVE: CASE EVENT DATE: 20220928
